FAERS Safety Report 6940667-7 (Version None)
Quarter: 2010Q3

REPORT INFORMATION
  Report Type: 
  Country: None (occurrence: None)
  Receive Date: 20100825
  Receipt Date: 20100818
  Transmission Date: 20110219
  Serious: Yes (Hospitalization)
  Sender: FDA-Public Use
  Company Number: US-ROCHE-696859

PATIENT
  Sex: Female
  Weight: 55.9 kg

DRUGS (11)
  1. PEGINTERFERON ALFA-2A [Suspect]
     Indication: HEPATITIS C
     Route: 065
     Dates: start: 20100105, end: 20100305
  2. PEGINTERFERON ALFA-2A [Suspect]
     Dosage: THERAPY SUSPENDED FOR ABOUT A WEEK
     Route: 065
     Dates: start: 20100301, end: 20100329
  3. PEGINTERFERON ALFA-2A [Suspect]
     Dosage: IN WEEK 21
     Route: 065
     Dates: start: 20100406, end: 20100429
  4. PEGINTERFERON ALFA-2A [Suspect]
     Dosage: COMPLETION OF THE THERAPY
     Route: 065
     Dates: end: 20100629
  5. RIBAVIRIN [Suspect]
     Indication: HEPATITIS C
     Route: 048
     Dates: start: 20100105, end: 20100305
  6. RIBAVIRIN [Suspect]
     Dosage: RECEIVED 4 TABLETS DAILY, THERAPY SUSPENDED FOR ABOUT A WEEK
     Route: 048
     Dates: start: 20100301, end: 20100329
  7. RIBAVIRIN [Suspect]
     Dosage: DOSE REDUCED TO 3 TABLETS DAILY, IN WEEK 21
     Route: 048
     Dates: start: 20100406, end: 20100629
  8. TRAMADOL HCL [Concomitant]
  9. NAPROXEN [Concomitant]
  10. PROVENTIL [Concomitant]
     Dosage: PROVENTIL/ALBUREROL NEB
  11. PROCAIN [Concomitant]

REACTIONS (17)
  - ABDOMINAL PAIN [None]
  - ABDOMINAL PAIN UPPER [None]
  - ANAEMIA [None]
  - ASTHENIA [None]
  - BLOOD IRON DECREASED [None]
  - DECREASED APPETITE [None]
  - DEHYDRATION [None]
  - DIZZINESS [None]
  - DYSPNOEA EXERTIONAL [None]
  - FULL BLOOD COUNT DECREASED [None]
  - HAEMATEMESIS [None]
  - HEPATIC PAIN [None]
  - NAUSEA [None]
  - NEPHROLITHIASIS [None]
  - PNEUMONIA [None]
  - SCAN ABDOMEN ABNORMAL [None]
  - VOMITING [None]
